FAERS Safety Report 9778467 (Version 2)
Quarter: 2013Q4

REPORT INFORMATION
  Report Type: Not Available
  Country: DK (occurrence: DK)
  Receive Date: 20131223
  Receipt Date: 20131223
  Transmission Date: 20140711
  Serious: Yes (Other)
  Sender: FDA-Public Use
  Company Number: DK-ASTELLAS-2013EU011010

PATIENT
  Age: 78 Year
  Sex: Female
  Weight: 75 kg

DRUGS (6)
  1. BETMIGA [Suspect]
     Indication: MICTURITION URGENCY
     Dosage: 1 DF, UID/QD
     Route: 048
     Dates: start: 201307
  2. CRESTOR [Concomitant]
     Indication: HYPERCHOLESTEROLAEMIA
     Dosage: 2 DF, UNKNOWN/D
     Route: 048
  3. ZANIDIP [Concomitant]
     Indication: HYPERTENSION
     Dosage: 1 DF, UNKNOWN/D
     Route: 048
  4. FURIX [Concomitant]
     Dosage: 2 DF, UNKNOWN/D
     Route: 048
  5. ALLOPURINOL [Concomitant]
     Dosage: 1 DF, UNKNOWN/D
     Route: 048
  6. METOPROLOL SUCCINATE [Concomitant]
     Indication: HYPERCHOLESTEROLAEMIA
     Dosage: UNK
     Route: 065

REACTIONS (1)
  - Generalised oedema [Recovered/Resolved]
